FAERS Safety Report 21694475 (Version 1)
Quarter: 2022Q4

REPORT INFORMATION
  Report Type: Spontaneous
  Country: US (occurrence: US)
  Receive Date: 20221207
  Receipt Date: 20221207
  Transmission Date: 20230113
  Serious: No
  Sender: FDA-Public Use
  Company Number: US-SIGMAPHARM LABORATORIES, LLC-2022SIG00021

PATIENT
  Sex: Female

DRUGS (4)
  1. LIOTHYRONINE SODIUM [Suspect]
     Active Substance: LIOTHYRONINE SODIUM
     Indication: Thyroid hormone replacement therapy
     Dosage: UNK UNK, 3X/DAY, 50 MCG TOTAL DAILY
     Dates: end: 202203
  2. LIOTHYRONINE SODIUM [Suspect]
     Active Substance: LIOTHYRONINE SODIUM
     Dosage: INCREASED DOSE
  3. LIOTHYRONINE SODIUM [Suspect]
     Active Substance: LIOTHYRONINE SODIUM
     Indication: Thyroid hormone replacement therapy
     Dosage: UNK UNK, 3X/DAY, 50 MCG TOTAL DAILY
  4. LIOTHYRONINE SODIUM [Suspect]
     Active Substance: LIOTHYRONINE SODIUM
     Dosage: DOSE INCREASED

REACTIONS (2)
  - Blood thyroid stimulating hormone increased [Not Recovered/Not Resolved]
  - Tri-iodothyronine free increased [Not Recovered/Not Resolved]

NARRATIVE: CASE EVENT DATE: 20220301
